FAERS Safety Report 10883777 (Version 3)
Quarter: 2015Q3

REPORT INFORMATION
  Report Type: Spontaneous
  Country: US (occurrence: US)
  Receive Date: 20150304
  Receipt Date: 20150713
  Transmission Date: 20151125
  Serious: Yes (Hospitalization, Other)
  Sender: FDA-Public Use
  Company Number: US-UCBSA-2015006088

PATIENT
  Age: 51 Year
  Sex: Female

DRUGS (1)
  1. CIMZIA [Suspect]
     Active Substance: CERTOLIZUMAB PEGOL
     Indication: CROHN^S DISEASE
     Dosage: 400 MG, MONTHLY (QM), STRENGTH-200 MG
     Route: 058
     Dates: start: 20140609, end: 20141217

REACTIONS (8)
  - Crohn^s disease [Unknown]
  - Mouth ulceration [Unknown]
  - Vaginal ulceration [Unknown]
  - Anorectal infection [Unknown]
  - Drug ineffective [Unknown]
  - Vaginal infection [Unknown]
  - Rectal ulcer [Unknown]
  - Oral infection [Unknown]

NARRATIVE: CASE EVENT DATE: 201407
